FAERS Safety Report 5989230-5 (Version None)
Quarter: 2008Q4

REPORT INFORMATION
  Report Type: 
  Country: None (occurrence: None)
  Receive Date: 20081205
  Receipt Date: 20081113
  Transmission Date: 20090506
  Serious: Yes (Other)
  Sender: FDA-Public Use
  Company Number: 6046582

PATIENT
  Age: 59 Year
  Sex: Female

DRUGS (4)
  1. LEVOTHYROXINE SODIUM [Suspect]
     Indication: HYPOTHYROIDISM
     Dosage: 150 MCG; 225 MCG; 250 MCG; 200 MCG
  2. IMATINIB MESYLATE [Suspect]
     Indication: CHRONIC MYELOID LEUKAEMIA
     Dosage: 800 MG, 400 MG
  3. ALLOPURINOL [Concomitant]
  4. FUROSEMIDE [Concomitant]

REACTIONS (17)
  - ALOPECIA [None]
  - ASTHENIA [None]
  - CHRONIC MYELOID LEUKAEMIA [None]
  - CONSTIPATION [None]
  - DRUG INTERACTION [None]
  - DRY SKIN [None]
  - FEELING COLD [None]
  - HAEMOGLOBIN DECREASED [None]
  - HEPATOMEGALY [None]
  - HYPERCATABOLISM [None]
  - HYPOTHYROIDISM [None]
  - OEDEMA PERIPHERAL [None]
  - PLATELET COUNT DECREASED [None]
  - PRURITUS [None]
  - SPLENOMEGALY [None]
  - SWELLING FACE [None]
  - WEIGHT INCREASED [None]
